FAERS Safety Report 8321148-5 (Version None)
Quarter: 2012Q2

REPORT INFORMATION
  Report Type: 
  Country: None (occurrence: None)
  Receive Date: 20120430
  Receipt Date: 20120423
  Transmission Date: 20120825
  Serious: Yes (Hospitalization, Other)
  Sender: FDA-Public Use
  Company Number: US-BAYER-2012-023028

PATIENT
  Age: 33 Year
  Sex: Female
  Weight: 62.132 kg

DRUGS (13)
  1. CLINDAMYCIN [Concomitant]
     Dosage: UNK
     Route: 061
     Dates: start: 20100928
  2. STEROIDS [Concomitant]
  3. YAZ [Suspect]
     Indication: CONTRACEPTION
     Dosage: UNK
     Route: 048
     Dates: start: 20060601, end: 20101101
  4. YAZ [Suspect]
     Indication: ENDOMETRIOSIS
  5. DROSPIRENONE AND ETHINYL ESTRADIOL [Suspect]
     Dosage: UNK
     Dates: start: 20060601, end: 20101101
  6. FENTANYL-100 [Concomitant]
     Indication: PAIN MANAGEMENT
     Route: 062
  7. ATIVAN [Concomitant]
  8. YASMIN [Suspect]
     Dosage: UNK
     Route: 048
     Dates: start: 20060601, end: 20101101
  9. SINGULAIR [Concomitant]
     Dosage: 10 MG, UNK
  10. AMBIEN [Concomitant]
  11. PHENERGAN [Concomitant]
     Dosage: DAILY DOSE 12.5 MG
     Route: 054
     Dates: start: 20101116
  12. DILAUDID [Concomitant]
     Indication: PAIN MANAGEMENT
     Route: 048
  13. PREDNISONE [Concomitant]
     Dosage: UNK
     Route: 048
     Dates: start: 20101111

REACTIONS (10)
  - VENOUS THROMBOSIS [None]
  - PAIN [None]
  - HEADACHE [None]
  - EYE PAIN [None]
  - CEREBRAL VENOUS THROMBOSIS [None]
  - JUGULAR VEIN THROMBOSIS [None]
  - INJURY [None]
  - EMOTIONAL DISTRESS [None]
  - GENERAL PHYSICAL HEALTH DETERIORATION [None]
  - ANXIETY [None]
